FAERS Safety Report 4511741-X (Version None)
Quarter: 2004Q4

REPORT INFORMATION
  Report Type: 
  Country: None (occurrence: None)
  Receive Date: 20041123
  Receipt Date: 20041123
  Transmission Date: 20050328
  Serious: Yes (Other)
  Sender: FDA-Public Use
  Company Number: None

PATIENT
  Age: 56 Year
  Sex: Male
  Weight: 92.1 kg

DRUGS (10)
  1. SIMVASTATIN [Suspect]
  2. METOPROLOL TARTRATE [Concomitant]
  3. NAPROXEN [Concomitant]
  4. RAMIPRIL [Concomitant]
  5. LANCET, SELECT LITE DEVICE [Concomitant]
  6. RANITIDINE HCL [Concomitant]
  7. AMLODIPINE BESYLATE [Concomitant]
  8. ACCU-CHEK COMFORT CURVE-H TEST STRIP [Concomitant]
  9. HYDROCORTISONE [Concomitant]
  10. PANTOPRAZOLE [Concomitant]

REACTIONS (1)
  - MYALGIA [None]
